FAERS Safety Report 11331954 (Version 1)
Quarter: 2015Q3

REPORT INFORMATION
  Report Type: Spontaneous
  Country: US (occurrence: US)
  Receive Date: 20150803
  Receipt Date: 20150803
  Transmission Date: 20151125
  Serious: Yes (Other)
  Sender: FDA-Public Use
  Company Number: US-ELI_LILLY_AND_COMPANY-US200806005050

PATIENT
  Age: 43 Year
  Sex: Male
  Weight: 121.9 kg

DRUGS (2)
  1. ZYPREXA [Suspect]
     Active Substance: OLANZAPINE
     Dates: start: 2002
  2. ZYPREXA [Suspect]
     Active Substance: OLANZAPINE
     Dosage: UNK, UNK
     Dates: start: 2001, end: 2002

REACTIONS (2)
  - Diabetes mellitus [Not Recovered/Not Resolved]
  - Weight increased [Recovering/Resolving]

NARRATIVE: CASE EVENT DATE: 20050606
